FAERS Safety Report 5467564-0 (Version None)
Quarter: 2007Q3

REPORT INFORMATION
  Report Type: 
  Country: None (occurrence: None)
  Receive Date: 20070921
  Receipt Date: 20070913
  Transmission Date: 20080115
  Serious: Yes (Hospitalization, Other)
  Sender: FDA-Public Use
  Company Number: 2007AL003817

PATIENT
  Age: 4 Year
  Sex: Female
  Weight: 18.1439 kg

DRUGS (3)
  1. ACETAMINOPHEN AND CODEINE PHOSPHATE [Suspect]
     Indication: EAR INFECTION
     Dosage: 7.5 ML; Q8H; PO
     Route: 048
     Dates: start: 20070911, end: 20070911
  2. ACETAMINOPHEN AND CODEINE PHOSPHATE [Suspect]
     Indication: PNEUMONIA
     Dosage: 7.5 ML; Q8H; PO
     Route: 048
     Dates: start: 20070911, end: 20070911
  3. PULMICORT [Concomitant]

REACTIONS (4)
  - BODY TEMPERATURE INCREASED [None]
  - LETHARGY [None]
  - LIVER FUNCTION TEST ABNORMAL [None]
  - VOMITING [None]
